FAERS Safety Report 5448480-7 (Version None)
Quarter: 2007Q3

REPORT INFORMATION
  Report Type: 
  Country: None (occurrence: None)
  Receive Date: 20070911
  Receipt Date: 20070829
  Transmission Date: 20080115
  Serious: Yes (Hospitalization)
  Sender: FDA-Public Use
  Company Number: US-KINGPHARMUSA00001-K200701110

PATIENT

DRUGS (2)
  1. ALTACE [Suspect]
  2. ROSUVASTATIN [Suspect]

REACTIONS (2)
  - DERMATITIS BULLOUS [None]
  - PRURITUS [None]
